FAERS Safety Report 7713616-1 (Version None)
Quarter: 2011Q3

REPORT INFORMATION
  Report Type: 
  Country: None (occurrence: None)
  Receive Date: 20110826
  Receipt Date: 20110822
  Transmission Date: 20111222
  Serious: Yes (Disabling)
  Sender: FDA-Public Use
  Company Number: JP-ROCHE-797078

PATIENT
  Sex: Male
  Weight: 47 kg

DRUGS (8)
  1. PRAVASTATIN SODIUM [Concomitant]
     Route: 048
     Dates: start: 20101115, end: 20110810
  2. ALOSITOL [Concomitant]
     Route: 048
     Dates: start: 20101115, end: 20110810
  3. ALOSENN [Concomitant]
     Dosage: REPORTED: GRANULATED POWDER
     Route: 048
     Dates: start: 20101115, end: 20110810
  4. LASIX [Concomitant]
     Route: 048
     Dates: start: 20101115, end: 20110810
  5. EURODIN [Concomitant]
     Route: 048
     Dates: start: 20101115, end: 20110810
  6. MIRCERA [Suspect]
     Indication: NEPHROGENIC ANAEMIA
     Route: 058
     Dates: start: 20110810, end: 20110810
  7. BUFFERIN [Concomitant]
     Route: 048
     Dates: start: 20101115, end: 20110810
  8. FAMOTIDINE [Concomitant]
     Route: 048
     Dates: start: 20101115, end: 20110810

REACTIONS (3)
  - VENTRICULAR FIBRILLATION [None]
  - CARDIAC FAILURE ACUTE [None]
  - CARDIO-RESPIRATORY ARREST [None]
